FAERS Safety Report 21192269 (Version 1)
Quarter: 2022Q3

REPORT INFORMATION
  Report Type: Spontaneous
  Country: US (occurrence: US)
  Receive Date: 20220809
  Receipt Date: 20220809
  Transmission Date: 20221027
  Serious: No
  Sender: FDA-Public Use
  Company Number: US-ELI_LILLY_AND_COMPANY-US202207008472

PATIENT

DRUGS (1)
  1. AMYVID [Suspect]
     Active Substance: FLORBETAPIR F-18
     Indication: Product used for unknown indication
     Dosage: 7.98 MCI, UNKNOWN
     Route: 065

REACTIONS (1)
  - Incorrect dose administered by product [Unknown]
